FAERS Safety Report 15715208 (Version 1)
Quarter: 2018Q4

REPORT INFORMATION
  Report Type: Spontaneous
  Country: IT (occurrence: IT)
  Receive Date: 20181212
  Receipt Date: 20181212
  Transmission Date: 20190205
  Serious: Yes (Hospitalization)
  Sender: FDA-Public Use
  Company Number: IT-BAYER-2018-232331

PATIENT
  Age: 85 Year
  Sex: Male

DRUGS (3)
  1. PANTORC [Concomitant]
     Active Substance: PANTOPRAZOLE SODIUM
  2. CARDIOASPIRIN 100 MG [Suspect]
     Active Substance: ASPIRIN
     Indication: PLATELET AGGREGATION INHIBITION
     Dosage: 100 MG, UNK
     Route: 048
     Dates: start: 20131101, end: 20181123
  3. TRIATEC [RAMIPRIL] [Concomitant]
     Active Substance: RAMIPRIL

REACTIONS (3)
  - Anaemia [Unknown]
  - Asthenia [Unknown]
  - Melaena [Unknown]

NARRATIVE: CASE EVENT DATE: 20181124
